FAERS Safety Report 19596233 (Version 1)
Quarter: 2021Q3

REPORT INFORMATION
  Report Type: Spontaneous
  Country: US (occurrence: US)
  Receive Date: 20210722
  Receipt Date: 20210722
  Transmission Date: 20211014
  Serious: No
  Sender: FDA-Public Use
  Company Number: US-SA-2021SA238309

PATIENT
  Sex: Female

DRUGS (1)
  1. DUPIXENT [Suspect]
     Active Substance: DUPILUMAB
     Indication: DERMATITIS ATOPIC
     Dosage: 300 MG, QOW
     Route: 058

REACTIONS (7)
  - Erythema [Unknown]
  - Product preparation error [Unknown]
  - Miliaria [Recovered/Resolved]
  - Weight increased [Unknown]
  - Conjunctivitis [Recovered/Resolved]
  - Eczema [Unknown]
  - Injection site pain [Unknown]
